FAERS Safety Report 10034386 (Version 1)
Quarter: 2014Q1

REPORT INFORMATION
  Report Type: Spontaneous
  Country: US (occurrence: None)
  Receive Date: 20140324
  Receipt Date: 20140324
  Transmission Date: 20141002
  Serious: Yes (Disabling)
  Sender: FDA-Public Use
  Company Number: None

PATIENT
  Age: 18 Year
  Sex: Female
  Weight: 46 kg

DRUGS (1)
  1. CEFUROXIME [Suspect]
     Indication: BACTERIAL INFECTION

REACTIONS (4)
  - Headache [None]
  - Pain [None]
  - Eye pain [None]
  - Activities of daily living impaired [None]
